FAERS Safety Report 21106652 (Version 1)
Quarter: 2022Q3

REPORT INFORMATION
  Report Type: Spontaneous
  Country: US (occurrence: None)
  Receive Date: 20220720
  Receipt Date: 20220720
  Transmission Date: 20221027
  Serious: Yes (Other)
  Sender: FDA-Public Use
  Company Number: None

PATIENT
  Age: 72 Year
  Sex: Female
  Weight: 85.5 kg

DRUGS (17)
  1. PAXLOVID [Suspect]
     Active Substance: NIRMATRELVIR\RITONAVIR
     Indication: COVID-19
     Dosage: FREQUENCY : TWICE A DAY;?
     Route: 048
     Dates: start: 20220704, end: 20220708
  2. METOPROLOL [Concomitant]
     Active Substance: METOPROLOL
  3. DICLOFENAC [Concomitant]
     Active Substance: DICLOFENAC
  4. PREVACID [Concomitant]
     Active Substance: LANSOPRAZOLE
  5. VALACYCLOVIR [Concomitant]
     Active Substance: VALACYCLOVIR HYDROCHLORIDE
  6. Timilol [Concomitant]
  7. ZYRTEC [Concomitant]
     Active Substance: CETIRIZINE HYDROCHLORIDE
  8. XANAX [Concomitant]
     Active Substance: ALPRAZOLAM
  9. MAXALT [Concomitant]
     Active Substance: RIZATRIPTAN BENZOATE
  10. VITAMIN D3 [Concomitant]
     Active Substance: CHOLECALCIFEROL
  11. MENAQUINONE 6 [Concomitant]
     Active Substance: MENAQUINONE 6
  12. VITAMIN C [Concomitant]
     Active Substance: ASCORBIC ACID
  13. ZINC [Concomitant]
     Active Substance: ZINC
  14. HERBALS [Concomitant]
     Active Substance: HERBALS
  15. UNSPECIFIED INGREDIENT [Concomitant]
     Active Substance: UNSPECIFIED INGREDIENT
  16. Bone Broth [Concomitant]
  17. COLLAGEN [Concomitant]
     Active Substance: COLLAGEN

REACTIONS (11)
  - Symptom recurrence [None]
  - Cough [None]
  - Sneezing [None]
  - Nasal congestion [None]
  - Headache [None]
  - Rhinorrhoea [None]
  - Fatigue [None]
  - SARS-CoV-2 test positive [None]
  - Rebound effect [None]
  - Head discomfort [None]
  - Upper-airway cough syndrome [None]

NARRATIVE: CASE EVENT DATE: 20220704
